FAERS Safety Report 23503341 (Version 2)
Quarter: 2024Q1

REPORT INFORMATION
  Report Type: Spontaneous
  Country: JP (occurrence: JP)
  Receive Date: 20240208
  Receipt Date: 20240221
  Transmission Date: 20240409
  Serious: Yes (Death)
  Sender: FDA-Public Use
  Company Number: JP-JNJFOC-20240215866

PATIENT
  Age: 79 Year
  Sex: Female

DRUGS (4)
  1. UPTRAVI [Suspect]
     Active Substance: SELEXIPAG
     Indication: Pulmonary arterial hypertension
     Dosage: 1.2 MG PER DAY
     Route: 048
     Dates: start: 20240117, end: 20240128
  2. OPSUMIT [Concomitant]
     Active Substance: MACITENTAN
     Indication: Pulmonary arterial hypertension
     Dates: end: 20240128
  3. FUROSEMIDE [Concomitant]
     Active Substance: FUROSEMIDE
  4. TOLVAPTAN [Concomitant]
     Active Substance: TOLVAPTAN

REACTIONS (3)
  - Cardiac disorder [Fatal]
  - Pulmonary arterial hypertension [Fatal]
  - Heart disease congenital [Fatal]

NARRATIVE: CASE EVENT DATE: 20240128
